FAERS Safety Report 16394153 (Version 1)
Quarter: 2019Q2

REPORT INFORMATION
  Report Type: Spontaneous
  Country: CN (occurrence: CN)
  Receive Date: 20190605
  Receipt Date: 20190605
  Transmission Date: 20190711
  Serious: Yes (Hospitalization)
  Sender: FDA-Public Use
  Company Number: CN-PFIZER INC-2019233063

PATIENT
  Age: 54 Year
  Sex: Male

DRUGS (1)
  1. XALKORI [Suspect]
     Active Substance: CRIZOTINIB
     Indication: LUNG ADENOCARCINOMA
     Dosage: 1 DF, 2X/DAY
     Route: 048
     Dates: start: 20190417, end: 20190511

REACTIONS (5)
  - Hypoaesthesia [Unknown]
  - Hepatic function abnormal [Unknown]
  - Nausea [Unknown]
  - Transaminases increased [Recovered/Resolved]
  - Discomfort [Unknown]

NARRATIVE: CASE EVENT DATE: 201905
